FAERS Safety Report 7761203-1 (Version None)
Quarter: 2011Q3

REPORT INFORMATION
  Report Type: 
  Country: None (occurrence: None)
  Receive Date: 20110920
  Receipt Date: 20110908
  Transmission Date: 20111222
  Serious: Yes (Hospitalization)
  Sender: FDA-Public Use
  Company Number: PHHO2011NO15394

PATIENT
  Sex: Male
  Weight: 91.5 kg

DRUGS (4)
  1. NEORAL [Suspect]
     Indication: IMMUNOSUPPRESSION
     Dosage: 100 MG, BID
  2. MYFORTIC [Suspect]
     Indication: IMMUNOSUPPRESSION
     Dosage: 540 MG, BID
     Route: 048
     Dates: start: 20081022
  3. PREDNISOLONE [Suspect]
     Indication: IMMUNOSUPPRESSION
     Dosage: 5 MG, QD
  4. EVEROLIMUS [Suspect]
     Indication: RENAL TRANSPLANT
     Route: 048

REACTIONS (2)
  - LIMB INJURY [None]
  - ERYSIPELAS [None]
